FAERS Safety Report 7200699-0 (Version None)
Quarter: 2010Q4

REPORT INFORMATION
  Report Type: 
  Country: None (occurrence: None)
  Receive Date: 20101228
  Receipt Date: 20101220
  Transmission Date: 20110411
  Serious: Yes (Other)
  Sender: FDA-Public Use
  Company Number: AU-GENZYME-MOZO-1000450

PATIENT
  Sex: Female
  Weight: 58.05 kg

DRUGS (1)
  1. MOZOBIL [Suspect]
     Indication: HAEMATOPOIETIC STEM CELL MOBILISATION
     Route: 065

REACTIONS (2)
  - HERPES ZOSTER [None]
  - INFECTION [None]
